FAERS Safety Report 8611867 (Version 2)
Quarter: 2013Q3

REPORT INFORMATION
  Report Type: Spontaneous
  Country: US (occurrence: US)
  Receive Date: 20120613
  Receipt Date: 20130723
  Transmission Date: 20140515
  Serious: Yes (Hospitalization, Disabling)
  Sender: FDA-Public Use
  Company Number: US-ASTRAZENECA-2012SE35773

PATIENT
  Age: 67 Year
  Sex: Female
  Weight: 72.6 kg

DRUGS (9)
  1. NEXIUM [Suspect]
     Indication: GASTROOESOPHAGEAL REFLUX DISEASE
     Dosage: EVERY DAY
     Route: 048
  2. NEXIUM [Suspect]
     Indication: GASTROOESOPHAGEAL REFLUX DISEASE
     Dosage: ONCE OR TWICE DAILY
     Route: 048
     Dates: start: 1999, end: 2009
  3. TYLENOL3  WITH CODEINE [Concomitant]
  4. ALPRAZOLAM [Concomitant]
     Indication: GASTROOESOPHAGEAL REFLUX DISEASE
  5. CYCLOBENZAPRINE [Concomitant]
  6. TRAMADOL [Concomitant]
  7. ZANTAC [Concomitant]
  8. PREVACID [Concomitant]
  9. CLOPIDOGREL [Concomitant]

REACTIONS (20)
  - Neck pain [Unknown]
  - Gait disturbance [Unknown]
  - Back pain [Unknown]
  - Blood pressure increased [Unknown]
  - Cardiac disorder [Unknown]
  - Arthropathy [Unknown]
  - Intervertebral disc degeneration [Unknown]
  - Wrist fracture [Unknown]
  - Osteoporosis [Unknown]
  - Multiple fractures [Unknown]
  - Peripheral arterial occlusive disease [Unknown]
  - Rheumatoid arthritis [Unknown]
  - Vitamin D deficiency [Unknown]
  - Arthritis [Unknown]
  - Aortic disorder [Unknown]
  - Fibromyalgia [Unknown]
  - Pain [Unknown]
  - Abdominal distension [Unknown]
  - Depression [Unknown]
  - Abdominal pain upper [Unknown]
